FAERS Safety Report 21449644 (Version 3)
Quarter: 2023Q2

REPORT INFORMATION
  Report Type: Spontaneous
  Country: US (occurrence: US)
  Receive Date: 20221013
  Receipt Date: 20230420
  Transmission Date: 20230721
  Serious: Yes (Other)
  Sender: FDA-Public Use
  Company Number: US-JNJFOC-20221011164

PATIENT
  Age: 79 Year
  Sex: Male

DRUGS (3)
  1. XARELTO [Suspect]
     Active Substance: RIVAROXABAN
     Indication: Product used for unknown indication
     Route: 048
     Dates: start: 20200925
  2. ALBUTEROL [Concomitant]
     Active Substance: ALBUTEROL
  3. KEFLEX [Concomitant]
     Active Substance: CEPHALEXIN

REACTIONS (5)
  - Blindness unilateral [Not Recovered/Not Resolved]
  - Macular oedema [Unknown]
  - Cataract [Recovered/Resolved]
  - Eye haemorrhage [Not Recovered/Not Resolved]
  - Off label use [Unknown]

NARRATIVE: CASE EVENT DATE: 20200101
